FAERS Safety Report 26111896 (Version 1)
Quarter: 2025Q4

REPORT INFORMATION
  Report Type: Spontaneous
  Country: US (occurrence: US)
  Receive Date: 20251202
  Receipt Date: 20251202
  Transmission Date: 20260118
  Serious: No
  Sender: ABBVIE
  Company Number: US-ABBVIE-6569110

PATIENT
  Sex: Female

DRUGS (2)
  1. QULIPTA [Suspect]
     Active Substance: ATOGEPANT
     Indication: Migraine prophylaxis
     Route: 048
  2. UBRELVY [Suspect]
     Active Substance: UBROGEPANT
     Indication: Migraine
     Route: 048

REACTIONS (5)
  - Micturition urgency [Unknown]
  - Neurogenic bladder [Recovered/Resolved]
  - Pelvic discomfort [Unknown]
  - Abdominal discomfort [Unknown]
  - Therapeutic response unexpected [Unknown]
